FAERS Safety Report 4653448-4 (Version None)
Quarter: 2005Q2

REPORT INFORMATION
  Report Type: 
  Country: None (occurrence: None)
  Receive Date: 20050505
  Receipt Date: 20050502
  Transmission Date: 20051028
  Serious: Yes (Hospitalization)
  Sender: FDA-Public Use
  Company Number: 151

PATIENT
  Age: 64 Year
  Sex: Male

DRUGS (4)
  1. MELPHALAN [Suspect]
     Indication: MULTIPLE MYELOMA
     Route: 042
     Dates: start: 20041110
  2. THALIDOMIDE [Suspect]
     Indication: MULTIPLE MYELOMA
  3. BORTEZOMIB [Suspect]
     Indication: MULTIPLE MYELOMA
  4. DEXAMETHASONE [Concomitant]
     Indication: MULTIPLE MYELOMA

REACTIONS (3)
  - ADRENAL INSUFFICIENCY [None]
  - ANOREXIA [None]
  - PLEURAL EFFUSION [None]
